FAERS Safety Report 5149270-5 (Version None)
Quarter: 2006Q4

REPORT INFORMATION
  Report Type: 
  Country: None (occurrence: None)
  Receive Date: 20061113
  Receipt Date: 20060912
  Transmission Date: 20070319
  Serious: Yes (Death, Hospitalization)
  Sender: FDA-Public Use
  Company Number: 461772

PATIENT
  Sex: Male

DRUGS (8)
  1. CARVEDILOL [Suspect]
     Dosage: 1.25MG TWICE PER DAY
     Route: 048
     Dates: start: 20040318, end: 20050713
  2. RENIVACE [Concomitant]
     Dates: start: 20030912, end: 20050802
  3. DIGOXIN [Concomitant]
     Dates: start: 20030912, end: 20050802
  4. ALDACTONE [Concomitant]
     Dates: start: 20030912, end: 20050802
  5. ASPIRIN [Concomitant]
     Dates: start: 20030912, end: 20050802
  6. WARFARIN SODIUM [Concomitant]
     Dates: start: 20030912, end: 20050802
  7. ISOSORBIDE MONONITRATE [Concomitant]
     Dates: start: 20040312, end: 20050802
  8. LASIX [Concomitant]
     Dates: start: 20030912, end: 20050802

REACTIONS (4)
  - LARYNGOPHARYNGITIS [None]
  - LUNG NEOPLASM [None]
  - OESOPHAGEAL NEOPLASM [None]
  - SUDDEN DEATH [None]
